FAERS Safety Report 4423065-X (Version None)
Quarter: 2004Q3

REPORT INFORMATION
  Report Type: 
  Country: None (occurrence: None)
  Receive Date: 20040806
  Receipt Date: 20040715
  Transmission Date: 20050211
  Serious: Yes (Hospitalization)
  Sender: FDA-Public Use
  Company Number: USA030536371

PATIENT
  Age: 78 Year
  Sex: Female
  Weight: 49 kg

DRUGS (19)
  1. EVISTA [Suspect]
     Indication: OSTEOPOROSIS
     Dosage: 60 MG/DAY
     Dates: start: 20001001
  2. CALCIUM [Concomitant]
  3. GLUCOSAMINE [Concomitant]
  4. MAGNESIUM [Concomitant]
  5. NEXIUM [Concomitant]
  6. ACIPHEX [Concomitant]
  7. PREVACID [Concomitant]
  8. LEVOXYL [Concomitant]
  9. GARLIC [Concomitant]
  10. MULTI-VITAMINS [Concomitant]
  11. VITAMIN E [Concomitant]
  12. VITAMIN B COMPLEX CAP [Concomitant]
  13. HERBAL EXTRACTS NOS [Concomitant]
  14. ALFALFA [Concomitant]
  15. GINGKOMIN (GINKGO BILOBA) [Concomitant]
  16. FLAXSEED OIL [Concomitant]
  17. SOY PROTEIN POWDER (SOY PROTEIN POWDER) [Concomitant]
  18. COZAAR [Concomitant]
  19. BABY ASPIRIN (ACETYLSALIYLIC ACID) [Concomitant]

REACTIONS (26)
  - ABDOMINAL PAIN UPPER [None]
  - ALOPECIA [None]
  - ARTHRALGIA [None]
  - ARTHRITIS [None]
  - ASTHENIA [None]
  - BLOOD PRESSURE INCREASED [None]
  - BONE DENSITY DECREASED [None]
  - BONE PAIN [None]
  - DIVERTICULITIS [None]
  - DIZZINESS [None]
  - DRY SKIN [None]
  - EYE HAEMORRHAGE [None]
  - FEELING ABNORMAL [None]
  - GALLBLADDER DISORDER [None]
  - GASTRIC DISORDER [None]
  - GROIN PAIN [None]
  - HAIR TEXTURE ABNORMAL [None]
  - HEADACHE [None]
  - HOT FLUSH [None]
  - MIGRAINE [None]
  - MUSCLE CRAMP [None]
  - PAIN IN EXTREMITY [None]
  - PARAESTHESIA [None]
  - PHOTOPSIA [None]
  - TREATMENT NONCOMPLIANCE [None]
  - TRICHORRHEXIS [None]
